FAERS Safety Report 7909498-5 (Version None)
Quarter: 2011Q4

REPORT INFORMATION
  Report Type: 
  Country: None (occurrence: None)
  Receive Date: 20111111
  Receipt Date: 20111018
  Transmission Date: 20120403
  Serious: No
  Sender: FDA-Public Use
  Company Number: US-BAYER-2011-044303

PATIENT
  Age: 59 Year
  Sex: Female

DRUGS (2)
  1. CLIMARA [Suspect]
     Dosage: 25 MCG/24HR, UNK
     Dates: start: 20100501
  2. CLIMARA [Suspect]
     Dosage: 25 MCG/24HR, UNK

REACTIONS (3)
  - HOT FLUSH [None]
  - APPLICATION SITE PAIN [None]
  - PRODUCT ADHESION ISSUE [None]
